FAERS Safety Report 8350449 (Version 2)
Quarter: 2014Q1

REPORT INFORMATION
  Report Type: Spontaneous
  Country: US (occurrence: US)
  Receive Date: 20120124
  Receipt Date: 20140120
  Transmission Date: 20141002
  Serious: Yes (Other)
  Sender: FDA-Public Use
  Company Number: US-BAYER-2012-004994

PATIENT
  Age: 40 Year
  Sex: Female
  Weight: 100 kg

DRUGS (5)
  1. YAZ [Suspect]
     Dosage: UNK
     Dates: start: 20081003, end: 20090921
  2. LISINOPRIL HYDROCHLORTHIAZID [Concomitant]
  3. GAS X [Concomitant]
  4. MILK OF MAGNESIA [Concomitant]
  5. ASPIRIN [Concomitant]
     Dosage: 81 MG, UNK

REACTIONS (3)
  - Cholecystectomy [None]
  - Cholecystitis [None]
  - Injury [None]
